FAERS Safety Report 6834479-2 (Version None)
Quarter: 2010Q3

REPORT INFORMATION
  Report Type: 
  Country: None (occurrence: None)
  Receive Date: 20100712
  Receipt Date: 20070501
  Transmission Date: 20110219
  Serious: No
  Sender: FDA-Public Use
  Company Number: US-PFIZER INC-2007026521

PATIENT
  Sex: Female
  Weight: 81.65 kg

DRUGS (10)
  1. CHANTIX [Suspect]
     Indication: SMOKING CESSATION THERAPY
     Dates: start: 20070319
  2. PREVACID [Concomitant]
  3. LASIX [Concomitant]
  4. LAMICTAL [Concomitant]
     Dates: start: 20030101
  5. MACRODANTIN [Concomitant]
     Dates: start: 20030101
  6. ZOLOFT [Concomitant]
     Dates: start: 20030101
  7. SYNTHROID [Concomitant]
  8. VITAMINS [Concomitant]
  9. OXYCONTIN [Concomitant]
     Dates: start: 20050101
  10. OXYCODONE HCL [Concomitant]
     Dates: start: 20050101

REACTIONS (6)
  - BALANCE DISORDER [None]
  - DIZZINESS [None]
  - FEELING ABNORMAL [None]
  - MALAISE [None]
  - NAUSEA [None]
  - VOMITING [None]
